FAERS Safety Report 16540063 (Version 3)
Quarter: 2019Q4

REPORT INFORMATION
  Report Type: Spontaneous
  Country: US (occurrence: US)
  Receive Date: 20190708
  Receipt Date: 20191224
  Transmission Date: 20200122
  Serious: Yes (Other)
  Sender: FDA-Public Use
  Company Number: US-ELI_LILLY_AND_COMPANY-US201907002044

PATIENT
  Age: 59 Year
  Sex: Male

DRUGS (2)
  1. CIALIS [Suspect]
     Active Substance: TADALAFIL
     Indication: BENIGN PROSTATIC HYPERPLASIA
     Dosage: 5 MG, UNKNOWN
     Route: 065
     Dates: start: 2015
  2. VIAGRA [Suspect]
     Active Substance: SILDENAFIL CITRATE
     Indication: ERECTILE DYSFUNCTION
     Dosage: 50 MG, PRN
     Route: 065
     Dates: start: 20010810, end: 20150715

REACTIONS (5)
  - Accident [Unknown]
  - Anxiety [Unknown]
  - Limb injury [Recovered/Resolved]
  - Malignant melanoma stage I [Unknown]
  - Emotional distress [Unknown]

NARRATIVE: CASE EVENT DATE: 20110805
